FAERS Safety Report 6205628-4 (Version None)
Quarter: 2009Q2

REPORT INFORMATION
  Report Type: 
  Country: None (occurrence: None)
  Receive Date: 20090527
  Receipt Date: 20090409
  Transmission Date: 20091009
  Serious: No
  Sender: FDA-Public Use
  Company Number: US-ABBOTT-09P-163-0567564-00

PATIENT
  Sex: Female

DRUGS (6)
  1. SIMCOR [Suspect]
     Indication: BLOOD CHOLESTEROL INCREASED
     Dosage: 500/20 MG
     Dates: start: 20090407
  2. PREMARIN [Concomitant]
     Indication: DRUG USE FOR UNKNOWN INDICATION
  3. FE [Concomitant]
     Indication: DRUG USE FOR UNKNOWN INDICATION
  4. DEPLIN [Concomitant]
     Indication: DRUG USE FOR UNKNOWN INDICATION
  5. HYDROXYUREA [Concomitant]
     Indication: DRUG USE FOR UNKNOWN INDICATION
  6. VOLTAREN [Concomitant]
     Indication: ARTHRALGIA
     Dosage: GEL

REACTIONS (1)
  - SENSORY DISTURBANCE [None]
